FAERS Safety Report 12637349 (Version 1)
Quarter: 2016Q3

REPORT INFORMATION
  Report Type: Spontaneous
  Country: US (occurrence: US)
  Receive Date: 20160809
  Receipt Date: 20160809
  Transmission Date: 20161109
  Serious: Yes (Other)
  Sender: FDA-Public Use
  Company Number: US-BEH-2015057074

PATIENT
  Age: 58 Year
  Sex: Female

DRUGS (1)
  1. PRIVIGEN [Suspect]
     Active Substance: HUMAN IMMUNOGLOBULIN G
     Indication: IMMUNODEFICIENCY COMMON VARIABLE
     Dosage: 40 MG (OVER 2 TO 4 HOURS)
     Route: 042
     Dates: start: 20150731, end: 20151215

REACTIONS (2)
  - Chest pain [Recovered/Resolved]
  - Anaphylactic reaction [Unknown]

NARRATIVE: CASE EVENT DATE: 20151215
